FAERS Safety Report 4282068-9 (Version None)
Quarter: 2004Q1

REPORT INFORMATION
  Report Type: 
  Country: None (occurrence: None)
  Receive Date: 20040130
  Receipt Date: 20021218
  Transmission Date: 20041129
  Serious: No
  Sender: FDA-Public Use
  Company Number: US-BRISTOL-MYERS SQUIBB COMPANY-12144911

PATIENT

DRUGS (1)
  1. TRAZODONE HCL [Suspect]
     Route: 048

REACTIONS (4)
  - DEFAECATION URGENCY [None]
  - ERECTILE DYSFUNCTION [None]
  - FEELING OF BODY TEMPERATURE CHANGE [None]
  - INSOMNIA [None]
